FAERS Safety Report 16080022 (Version 4)
Quarter: 2019Q3

REPORT INFORMATION
  Report Type: Spontaneous
  Country: US (occurrence: US)
  Receive Date: 20190315
  Receipt Date: 20190725
  Transmission Date: 20191004
  Serious: No
  Sender: FDA-Public Use
  Company Number: US-ACTELION-A-NJ2016-140829

PATIENT
  Age: 58 Year
  Sex: Male

DRUGS (4)
  1. IMODIUM [Concomitant]
     Active Substance: LOPERAMIDE HYDROCHLORIDE
  2. TRACLEER [Suspect]
     Active Substance: BOSENTAN
     Dosage: 125 MG, BID
     Route: 048
     Dates: start: 20160129
  3. TRACLEER [Suspect]
     Active Substance: BOSENTAN
     Indication: PULMONARY ARTERIAL HYPERTENSION
     Dosage: 62.5 MG, BID
     Route: 048
     Dates: start: 20140130
  4. TYVASO [Concomitant]
     Active Substance: TREPROSTINIL

REACTIONS (7)
  - Asthenia [Unknown]
  - Asthma [Recovered/Resolved]
  - Dyspnoea [Not Recovered/Not Resolved]
  - Food poisoning [Unknown]
  - Gastric disorder [Unknown]
  - Diarrhoea [Unknown]
  - Headache [Not Recovered/Not Resolved]

NARRATIVE: CASE EVENT DATE: 20160731
